FAERS Safety Report 10730559 (Version 1)
Quarter: 2015Q1

REPORT INFORMATION
  Report Type: Spontaneous
  Country: AU (occurrence: AU)
  Receive Date: 20150122
  Receipt Date: 20150122
  Transmission Date: 20150721
  Serious: Yes (Death)
  Sender: FDA-Public Use
  Company Number: AU-MUNDIPHARMA DS AND PHARMACOVIGILANCE-GBR-2015-0024982

PATIENT
  Sex: Male

DRUGS (1)
  1. TARGIN 20/10 MG [Suspect]
     Active Substance: NALOXONE HYDROCHLORIDE\OXYCODONE HYDROCHLORIDE
     Indication: PALLIATIVE CARE
     Dosage: 20/10 MG, DAILY
     Route: 048
     Dates: end: 20150113

REACTIONS (1)
  - Mesothelioma malignant [Fatal]
